FAERS Safety Report 8314257-8 (Version None)
Quarter: 2012Q2

REPORT INFORMATION
  Report Type: 
  Country: None (occurrence: None)
  Receive Date: 20120424
  Receipt Date: 20120416
  Transmission Date: 20120825
  Serious: Yes (Hospitalization)
  Sender: FDA-Public Use
  Company Number: 2012SP018298

PATIENT
  Age: 69 Year
  Sex: Female
  Weight: 55 kg

DRUGS (13)
  1. TELAVIC (ANTIVIRALS NOS) [Suspect]
     Indication: HEPATITIS C
     Dosage: 1500 MG; QD; PO
     Route: 048
     Dates: start: 20120124, end: 20120319
  2. VASOLAN /00014302/ [Concomitant]
  3. MUCOSTA [Concomitant]
  4. NEO-MERCAZOLE TAB [Concomitant]
  5. LOXOPROFEN [Concomitant]
  6. ZOLPIDEM [Concomitant]
  7. PEGINTERFERON ALFA-2B [Suspect]
     Indication: HEPATITIS C
     Dosage: 1.5 MCG/KG; QW; SC
     Route: 058
     Dates: start: 20120124, end: 20120319
  8. LANIRAPID [Concomitant]
  9. WARFARIN POTASSIUM [Concomitant]
  10. CLOBETASOL PROPIONATE [Concomitant]
  11. REBETOL [Suspect]
     Dosage: 600 MG; QD; PO, 400 MG; QD; PO, 200 MG; QD; PO
     Route: 048
     Dates: start: 20120215, end: 20120319
  12. REBETOL [Suspect]
     Dosage: 600 MG; QD; PO, 400 MG; QD; PO, 200 MG; QD; PO
     Route: 048
     Dates: start: 20120124, end: 20120202
  13. REBETOL [Suspect]
     Dosage: 600 MG; QD; PO, 400 MG; QD; PO, 200 MG; QD; PO
     Route: 048
     Dates: start: 20120203, end: 20120214

REACTIONS (13)
  - INTERNATIONAL NORMALISED RATIO ABNORMAL [None]
  - PROTHROMBIN TIME ABNORMAL [None]
  - ANAEMIA [None]
  - DECREASED APPETITE [None]
  - BLOOD BILIRUBIN INCREASED [None]
  - DYSGEUSIA [None]
  - ERYTHEMA [None]
  - PRURITUS [None]
  - PYREXIA [None]
  - EYELID OEDEMA [None]
  - CARDIAC FAILURE [None]
  - NAUSEA [None]
  - CARDIOACTIVE DRUG LEVEL INCREASED [None]
